FAERS Safety Report 6342186-8 (Version None)
Quarter: 2009Q3

REPORT INFORMATION
  Report Type: 
  Country: None (occurrence: None)
  Receive Date: 20090903
  Receipt Date: 20090903
  Transmission Date: 20100115
  Serious: Yes (Life-Threatening, Disabling)
  Sender: FDA-Public Use
  Company Number: None

PATIENT
  Age: 67 Year
  Sex: Female

DRUGS (1)
  1. ZICAM NASAL GEL MATRIXX SCOTTSDALE, AZ. [Suspect]
     Indication: NASOPHARYNGITIS
     Dosage: PUMP ONCE IN EACH NOSTRIL EVERY 4 HRS.
     Dates: start: 20090504

REACTIONS (1)
  - ANOSMIA [None]
